FAERS Safety Report 8885539 (Version 2)
Quarter: 2012Q4

REPORT INFORMATION
  Report Type: 
  Country: US (occurrence: US)
  Receive Date: 20121101
  Receipt Date: 20121109
  Transmission Date: 20130627
  Serious: Yes (Hospitalization)
  Sender: FDA-Public Use
  Company Number: US-PFIZER INC-2012268618

PATIENT
  Age: 62 Year
  Sex: Female
  Weight: 58.6 kg

DRUGS (2)
  1. SUNITINIB MALATE [Suspect]
     Indication: NON-SMALL CELL LUNG CANCER NOS
     Dosage: 37.5 mg, PO QD Cycle 21 days
     Route: 048
     Dates: start: 20120621, end: 20120905
  2. PEMETREXED [Suspect]
     Indication: NON-SMALL CELL LUNG CANCER NOS
     Dosage: UNK

REACTIONS (2)
  - Febrile neutropenia [Recovering/Resolving]
  - Lung infection [Recovering/Resolving]
